FAERS Safety Report 20660146 (Version 1)
Quarter: 2022Q1

REPORT INFORMATION
  Report Type: Spontaneous
  Country: RO (occurrence: RO)
  Receive Date: 20220331
  Receipt Date: 20220331
  Transmission Date: 20220424
  Serious: Yes (Other)
  Sender: FDA-Public Use
  Company Number: RO-PFIZER INC-202200455610

PATIENT
  Age: 67 Year
  Sex: Male
  Weight: 95 kg

DRUGS (3)
  1. MEDROL [Suspect]
     Active Substance: METHYLPREDNISOLONE
     Indication: Rheumatic disorder
     Dosage: UNK
  2. METHOTREXATE SODIUM [Suspect]
     Active Substance: METHOTREXATE SODIUM
     Indication: Rheumatic disorder
     Dosage: UNK
  3. MABTHERA [Concomitant]
     Active Substance: RITUXIMAB
     Dosage: UNK

REACTIONS (2)
  - Cataract [Unknown]
  - Visual impairment [Unknown]
